FAERS Safety Report 18543724 (Version 1)
Quarter: 2020Q4

REPORT INFORMATION
  Report Type: Spontaneous
  Country: BG (occurrence: BG)
  Receive Date: 20201124
  Receipt Date: 20201124
  Transmission Date: 20210114
  Serious: Yes (Death, Hospitalization)
  Sender: FDA-Public Use
  Company Number: BG-B.BRAUN MEDICAL INC.-2096270

PATIENT
  Age: 19 Year
  Sex: Male

DRUGS (33)
  1. METOCLOPRAMIDE HYDROCHLORIDE. [Concomitant]
     Active Substance: METOCLOPRAMIDE HYDROCHLORIDE
  2. CHLOROQUINE PHOSPHATE. [Concomitant]
     Active Substance: CHLOROQUINE PHOSPHATE
  3. MIDAZOLAM. [Concomitant]
     Active Substance: MIDAZOLAM
  4. MELOXICAM, PRIDINOL MESILATE [Concomitant]
  5. NUTRIFLEX OMEGA PLUS [Concomitant]
     Active Substance: AMINO ACIDS\DEXTROSE\ELECTROLYTES NOS\SOYBEAN OIL
  6. NADROPARIN CALCIUM [Concomitant]
     Active Substance: NADROPARIN CALCIUM
  7. ASCORBIC ACID. [Concomitant]
     Active Substance: ASCORBIC ACID
  8. STEROFUNDIN [Concomitant]
     Active Substance: CALCIUM CHLORIDE\MAGNESIUM CHLORIDE\POTASSIUM CHLORIDE\SODIUM ACETATE\SODIUM CHLORIDE
  9. BROMHEXINE [Concomitant]
     Active Substance: BROMHEXINE
  10. CLONIDINE HYDROCHLORIDE. [Concomitant]
     Active Substance: CLONIDINE HYDROCHLORIDE
  11. METAMIZOLE [Concomitant]
     Active Substance: METAMIZOLE
  12. ESOMEPRAZOLE. [Concomitant]
     Active Substance: ESOMEPRAZOLE MAGNESIUM
  13. GLUCOSE [Concomitant]
     Active Substance: DEXTROSE
  14. DOXEPIN HYDROCHLORIDE. [Concomitant]
     Active Substance: DOXEPIN HYDROCHLORIDE
  15. VANCOMYCIN HYDROCHLORIDE. [Concomitant]
     Active Substance: VANCOMYCIN HYDROCHLORIDE
  16. METHYLPREDNISOLONE. [Concomitant]
     Active Substance: METHYLPREDNISOLONE
  17. CITICOLINE [Concomitant]
     Active Substance: CITICOLINE
  18. SILYBUM MARIANUM [Concomitant]
     Active Substance: DIETARY SUPPLEMENT\HERBALS\MILK THISTLE
  19. TOCILIZUMAB. [Concomitant]
     Active Substance: TOCILIZUMAB
  20. FUROSEMIDE. [Concomitant]
     Active Substance: FUROSEMIDE
  21. PARACETAMOL [Concomitant]
     Active Substance: ACETAMINOPHEN
  22. SACCHAROMYCES BOULARDII [Concomitant]
     Active Substance: SACCHAROMYCES CEREVISIAE
  23. DEXAMETHASONE. [Concomitant]
     Active Substance: DEXAMETHASONE
  24. MEROPENEM. [Concomitant]
     Active Substance: MEROPENEM
  25. CALCIUM GLUCONATE. [Concomitant]
     Active Substance: CALCIUM GLUCONATE
  26. CLARITHROMYCIN. [Concomitant]
     Active Substance: CLARITHROMYCIN
  27. 0.9% SODIUM CHLORIDE INJECTION USP 0264-1800-31 0264-1800-32 (NDA 0174 [Suspect]
     Active Substance: SODIUM CHLORIDE
     Dates: start: 20200707, end: 20200709
  28. SODIUM CHLORIDE 0.9% [Concomitant]
     Active Substance: SODIUM CHLORIDE
  29. AZITHROMYCIN ANHYDROUS. [Concomitant]
     Active Substance: AZITHROMYCIN ANHYDROUS
  30. FAMOTIDINE. [Concomitant]
     Active Substance: FAMOTIDINE
  31. ENOXAPARIN SODIUM. [Concomitant]
     Active Substance: ENOXAPARIN SODIUM
  32. ALBUMIN HUMAN [Concomitant]
     Active Substance: ALBUMIN HUMAN
  33. FLUCONAZOLE. [Concomitant]
     Active Substance: FLUCONAZOLE

REACTIONS (11)
  - Hallucination [None]
  - Pulmonary oedema [None]
  - Encephalopathy [None]
  - Cardiovascular insufficiency [None]
  - Acute respiratory failure [None]
  - Hypertension [None]
  - Embolism [None]
  - Hypoxia [None]
  - COVID-19 pneumonia [None]
  - Brain oedema [None]
  - Tachypnoea [None]
